FAERS Safety Report 17778148 (Version 2)
Quarter: 2020Q2

REPORT INFORMATION
  Report Type: Report from Study
  Country: None (occurrence: CA)
  Receive Date: 20200513
  Receipt Date: 20200618
  Transmission Date: 20200714
  Serious: Yes (Hospitalization, Congenital Anomaly, Other)
  Sender: FDA-Public Use
  Company Number: CA-ABBVIE-20K-028-3400989-00

PATIENT
  Age: 66 Year
  Sex: Male

DRUGS (1)
  1. MAVIRET [Suspect]
     Active Substance: GLECAPREVIR\PIBRENTASVIR
     Indication: CHRONIC HEPATITIS C
     Route: 048
     Dates: start: 20200424, end: 202004

REACTIONS (10)
  - Bladder disorder [Recovered/Resolved]
  - Pain [Not Recovered/Not Resolved]
  - Discomfort [Not Recovered/Not Resolved]
  - Vomiting [Unknown]
  - Urinary tract infection [Recovered/Resolved]
  - Ill-defined disorder [Unknown]
  - Cholelithiasis [Unknown]
  - Hernia [Recovered/Resolved]
  - Abdominal pain [Unknown]
  - Nausea [Unknown]

NARRATIVE: CASE EVENT DATE: 2020
